FAERS Safety Report 23653443 (Version 1)
Quarter: 2024Q1

REPORT INFORMATION
  Report Type: Spontaneous
  Country: US (occurrence: US)
  Receive Date: 20240320
  Receipt Date: 20240320
  Transmission Date: 20240410
  Serious: No
  Sender: FDA-Public Use
  Company Number: US-ELI_LILLY_AND_COMPANY-US202403011062

PATIENT
  Age: 65 Year

DRUGS (1)
  1. FORTEO [Suspect]
     Active Substance: TERIPARATIDE
     Indication: Osteoporosis
     Dosage: 20 UG, DAILY
     Route: 065
     Dates: start: 202312

REACTIONS (6)
  - Eating disorder [Unknown]
  - Flatulence [Unknown]
  - Saliva altered [Unknown]
  - Gastrointestinal pain [Unknown]
  - Eructation [Unknown]
  - Hyperchlorhydria [Unknown]
